FAERS Safety Report 7610795-1 (Version None)
Quarter: 2011Q3

REPORT INFORMATION
  Report Type: 
  Country: None (occurrence: None)
  Receive Date: 20110715
  Receipt Date: 20110711
  Transmission Date: 20111222
  Serious: Yes (Death)
  Sender: FDA-Public Use
  Company Number: PHHY2011CZ41391

PATIENT
  Sex: Female

DRUGS (3)
  1. FENTANYL [Concomitant]
     Dosage: UNK
  2. ZOMETA [Suspect]
     Indication: METASTASES TO BONE
     Dosage: UNK
     Dates: start: 20070406
  3. ANODYNE [Concomitant]

REACTIONS (3)
  - NEOPLASM MALIGNANT [None]
  - NEOPLASM PROGRESSION [None]
  - BREAST CANCER METASTATIC [None]
